FAERS Safety Report 17136164 (Version 1)
Quarter: 2019Q4

REPORT INFORMATION
  Report Type: Spontaneous
  Country: HR (occurrence: HR)
  Receive Date: 20191210
  Receipt Date: 20191210
  Transmission Date: 20200122
  Serious: Yes (Other)
  Sender: FDA-Public Use
  Company Number: HR-ASTRAZENECA-2019SF74241

PATIENT
  Age: 40 Year
  Sex: Female

DRUGS (4)
  1. TEOLIN [Concomitant]
  2. DECORTIN [Concomitant]
     Active Substance: PREDNISONE
     Dosage: 15 MG PERMANENTLY
  3. FASENRA [Suspect]
     Active Substance: BENRALIZUMAB
     Indication: ASTHMA
     Route: 058
     Dates: start: 201909
  4. SPIRIVA RESPIMAT [Concomitant]
     Active Substance: TIOTROPIUM BROMIDE
     Dosage: 2 INHALATIONS

REACTIONS (2)
  - Pharyngitis [Recovered/Resolved]
  - Blindness unilateral [Recovered/Resolved with Sequelae]
